FAERS Safety Report 16306120 (Version 2)
Quarter: 2020Q2

REPORT INFORMATION
  Report Type: Spontaneous
  Country: US (occurrence: US)
  Receive Date: 20190513
  Receipt Date: 20200401
  Transmission Date: 20200713
  Serious: Yes (Hospitalization, Other)
  Sender: FDA-Public Use
  Company Number: US-GLAXOSMITHKLINE-US2019GSK084583

PATIENT
  Sex: Male

DRUGS (6)
  1. PREVACID [Suspect]
     Active Substance: LANSOPRAZOLE
     Indication: DYSPEPSIA
  2. OMEPRAZOLE. [Suspect]
     Active Substance: OMEPRAZOLE
     Indication: DYSPEPSIA
  3. PREVACID [Suspect]
     Active Substance: LANSOPRAZOLE
     Indication: GASTROOESOPHAGEAL REFLUX DISEASE
     Dosage: 30 MG, QD
     Route: 065
     Dates: start: 199503, end: 200211
  4. OMEPRAZOLE. [Suspect]
     Active Substance: OMEPRAZOLE
     Indication: GASTROOESOPHAGEAL REFLUX DISEASE
     Dosage: 20 MG, QD
     Route: 048
     Dates: start: 20140114
  5. PREVACID [Suspect]
     Active Substance: LANSOPRAZOLE
     Indication: DYSPEPSIA
  6. PREVACID [Suspect]
     Active Substance: LANSOPRAZOLE
     Indication: GASTROOESOPHAGEAL REFLUX DISEASE
     Dosage: 15 MG, QD
     Route: 065
     Dates: start: 201010, end: 2011

REACTIONS (26)
  - Chronic kidney disease [Unknown]
  - Nephritic syndrome [Unknown]
  - Tubulointerstitial nephritis [Unknown]
  - Dialysis [Not Recovered/Not Resolved]
  - Acute kidney injury [Unknown]
  - Glomerulonephritis [Unknown]
  - IgA nephropathy [Unknown]
  - Kidney fibrosis [Unknown]
  - Renal tubular necrosis [Unknown]
  - Renal injury [Unknown]
  - Proteinuria [Unknown]
  - Haematuria [Unknown]
  - Glomerulonephritis chronic [Unknown]
  - Glomerulosclerosis [Unknown]
  - Renal transplant [Unknown]
  - Pollakiuria [Unknown]
  - Haemodialysis [Unknown]
  - End stage renal disease [Not Recovered/Not Resolved]
  - Hypertensive nephropathy [Unknown]
  - Nephrogenic anaemia [Unknown]
  - Renal failure [Unknown]
  - Glomerulonephritis rapidly progressive [Unknown]
  - Nephropathy [Unknown]
  - Hydronephrosis [Unknown]
  - Nephrosclerosis [Unknown]
  - Renal impairment [Unknown]
